FAERS Safety Report 14094669 (Version 1)
Quarter: 2017Q4

REPORT INFORMATION
  Report Type: Spontaneous
  Country: US (occurrence: US)
  Receive Date: 20171016
  Receipt Date: 20171016
  Transmission Date: 20180321
  Serious: No
  Sender: FDA-Public Use
  Company Number: US-AMGEN-USASP2017047917

PATIENT
  Age: 88 Year
  Sex: Male
  Weight: 95.24 kg

DRUGS (1)
  1. PROLIA [Suspect]
     Active Substance: DENOSUMAB
     Indication: OSTEOPENIA
     Dosage: UNK
     Route: 065
     Dates: start: 20140120

REACTIONS (2)
  - Off label use [Unknown]
  - Extra dose administered [Unknown]

NARRATIVE: CASE EVENT DATE: 20170327
